APPROVED DRUG PRODUCT: LUPRON DEPOT
Active Ingredient: LEUPROLIDE ACETATE
Strength: 3.75MG/VIAL **Federal Register determination that product was not discontinued or withdrawn for safety or effectiveness reasons**
Dosage Form/Route: INJECTABLE;INJECTION
Application: N020011 | Product #001
Applicant: ABBVIE ENDOCRINE INC
Approved: Oct 22, 1990 | RLD: Yes | RS: No | Type: DISCN